FAERS Safety Report 17865594 (Version 1)
Quarter: 2020Q2

REPORT INFORMATION
  Report Type: Spontaneous
  Country: US (occurrence: US)
  Receive Date: 20200605
  Receipt Date: 20200605
  Transmission Date: 20200714
  Serious: No
  Sender: FDA-Public Use
  Company Number: None

PATIENT
  Age: 64 Year
  Sex: Female
  Weight: 95.2 kg

DRUGS (10)
  1. PANTOPRAZOLE 40MG PO DAILY [Concomitant]
     Dates: start: 20200603
  2. CLOPIDOGREL 75MG PO DAILY [Concomitant]
     Dates: start: 20200602
  3. ISOSORBIDE MONONITRATE 30MG PO DAILY [Concomitant]
     Dates: start: 20200602
  4. MONTELUKAST 10MG PO DAILY [Concomitant]
     Dates: start: 20200603
  5. PREGABALIN 75MG PO TID [Concomitant]
     Dates: start: 20200603
  6. ASPIRIN 81MG TAB PO DAILY [Concomitant]
     Dates: start: 20200603
  7. BUMETANIDE 1MG PO BID [Concomitant]
     Dates: start: 20200602
  8. REMDESIVIR. [Suspect]
     Active Substance: REMDESIVIR
     Indication: COVID-19
     Route: 041
     Dates: start: 20200603
  9. CARVEDILOL 25MG PO BID [Concomitant]
     Dates: start: 20200602
  10. TRAMADOL 50MG PO Q6H PRN PAIN [Concomitant]
     Dates: start: 20200603

REACTIONS (2)
  - Blood creatinine increased [None]
  - Acute kidney injury [None]

NARRATIVE: CASE EVENT DATE: 20200605
